FAERS Safety Report 8574060-0 (Version None)
Quarter: 2012Q3

REPORT INFORMATION
  Report Type: 
  Country: None (occurrence: None)
  Receive Date: 20120806
  Receipt Date: 20120801
  Transmission Date: 20120928
  Serious: Yes (Death, Hospitalization, Other)
  Sender: FDA-Public Use
  Company Number: US-009507513-1112USA01248

PATIENT

DRUGS (4)
  1. RALTEGRAVIR [Suspect]
     Indication: HIV INFECTION
     Route: 048
     Dates: start: 20101207, end: 20120407
  2. SULFAMETHOXAZOLE AND TRIMETHOPRIM [Suspect]
     Dates: start: 20060630, end: 20120413
  3. LOPINAVIR AND RITONAVIR [Suspect]
     Route: 048
     Dates: start: 20111207, end: 20120407
  4. IBRUPROFEN [Suspect]
     Dates: start: 20111014

REACTIONS (5)
  - ANAEMIA OF PREGNANCY [None]
  - PREMATURE LABOUR [None]
  - LIP NEOPLASM MALIGNANT STAGE UNSPECIFIED [None]
  - XERODERMA PIGMENTOSUM [None]
  - MATERNAL EXPOSURE DURING PREGNANCY [None]
